FAERS Safety Report 17051714 (Version 1)
Quarter: 2019Q4

REPORT INFORMATION
  Report Type: Spontaneous
  Country: CN (occurrence: CN)
  Receive Date: 20191120
  Receipt Date: 20191120
  Transmission Date: 20200122
  Serious: Yes (Death, Life-Threatening, Hospitalization, Other)
  Sender: FDA-Public Use
  Company Number: CN-LUPIN PHARMACEUTICALS INC.-2019-07433

PATIENT
  Age: 72 Year
  Sex: Male

DRUGS (19)
  1. LENALIDOMIDE [Suspect]
     Active Substance: LENALIDOMIDE
     Indication: PLASMA CELL MYELOMA
     Dosage: 15 MILLIGRAM (15 MG/DAY (FROM DAYS 1-21)
     Route: 065
     Dates: start: 20130416
  2. DOXORUBICIN [Suspect]
     Active Substance: DOXORUBICIN
     Indication: PLASMA CELL MYELOMA
     Dosage: 10 MILLIGRAM/SQ METER (PER DAY (10 MG/M2/D FOR DAYS 1-4))
     Route: 065
     Dates: start: 20130130, end: 201304
  3. MEROPENEM. [Suspect]
     Active Substance: MEROPENEM
     Indication: ASPERGILLUS INFECTION
     Dosage: 2 GRAM, TID
     Route: 065
     Dates: start: 20171219
  4. VORICONAZOLE. [Suspect]
     Active Substance: VORICONAZOLE
     Dosage: REDUCED DOSE
     Route: 048
     Dates: start: 201712
  5. BORTEZOMIB. [Suspect]
     Active Substance: BORTEZOMIB
     Indication: PLASMA CELL MYELOMA
     Dosage: 1.3 MILLIGRAM/SQ. METER
     Route: 065
     Dates: start: 201605
  6. DEXAMETHASONE. [Suspect]
     Active Substance: DEXAMETHASONE
     Dosage: 40 MILLIGRAM
     Route: 065
     Dates: start: 201605
  7. DEXAMETHASONE. [Suspect]
     Active Substance: DEXAMETHASONE
     Dosage: 20 MILLIGRAM QW
     Route: 065
     Dates: start: 20171124
  8. ITRACONAZOLE. [Suspect]
     Active Substance: ITRACONAZOLE
     Indication: ASPERGILLUS INFECTION
     Dosage: UNK
     Route: 065
  9. VORICONAZOLE. [Suspect]
     Active Substance: VORICONAZOLE
     Indication: ASPERGILLUS INFECTION
     Dosage: 200 MILLIGRAM, BID
     Route: 048
     Dates: start: 201710
  10. LINEZOLID. [Suspect]
     Active Substance: LINEZOLID
     Indication: ASPERGILLUS INFECTION
     Dosage: 0.6 GRAM, BID
     Route: 065
     Dates: start: 20171219
  11. VINCRISTINE [Suspect]
     Active Substance: VINCRISTINE
     Indication: PLASMA CELL MYELOMA
     Dosage: 0.5 MILLIGRAM (PER DAY (FROM THE FIRST DAY 4))
     Route: 065
     Dates: start: 20130130, end: 201304
  12. LENALIDOMIDE [Suspect]
     Active Substance: LENALIDOMIDE
     Dosage: 15 MILLIGRAM (15 MG/DAY FOR 21 DAYS WITH AN INTERVAL OF 7 DAYS IN A 28-DAY-COURSE TREATMENT)
     Route: 065
  13. CYCLOPHOSPHAMIDE. [Suspect]
     Active Substance: CYCLOPHOSPHAMIDE
     Dosage: 300 MILLIGRAM (300 MG/M2/W FOR 4 WEEKS)
     Route: 065
     Dates: start: 20171124
  14. INSULIN [Concomitant]
     Active Substance: INSULIN NOS
     Indication: DIABETES MELLITUS
     Dosage: UNK
     Route: 065
  15. BORTEZOMIB. [Suspect]
     Active Substance: BORTEZOMIB
     Dosage: 1.1 MILLIGRAM/SQ. METER
     Route: 065
     Dates: start: 20171124
  16. CYCLOPHOSPHAMIDE. [Suspect]
     Active Substance: CYCLOPHOSPHAMIDE
     Indication: PLASMA CELL MYELOMA
     Dosage: 300 MG/M2/W FOR 4 WEEKS
     Route: 065
     Dates: start: 20130416
  17. VORICONAZOLE. [Suspect]
     Active Substance: VORICONAZOLE
     Dosage: 0.6 MILLIGRAM, BID
     Route: 048
     Dates: start: 20171219
  18. DEXAMETHASONE. [Suspect]
     Active Substance: DEXAMETHASONE
     Indication: PLASMA CELL MYELOMA
     Dosage: 40 MG/DAY (DAYS 1-4)
     Route: 065
     Dates: start: 20130130, end: 201304
  19. DEXAMETHASONE. [Suspect]
     Active Substance: DEXAMETHASONE
     Dosage: 40 MG PER WEEK
     Route: 065
     Dates: start: 20130416

REACTIONS (6)
  - Coma [Not Recovered/Not Resolved]
  - Drug resistance [Unknown]
  - Platelet count decreased [Unknown]
  - Mucormycosis [Not Recovered/Not Resolved]
  - Drug ineffective [Unknown]
  - Acute myocardial infarction [Fatal]

NARRATIVE: CASE EVENT DATE: 201712
